FAERS Safety Report 12827527 (Version 2)
Quarter: 2016Q4

REPORT INFORMATION
  Report Type: Spontaneous
  Country: IT (occurrence: IT)
  Receive Date: 20161007
  Receipt Date: 20161014
  Transmission Date: 20170207
  Serious: Yes (Hospitalization, Disabling, Other)
  Sender: FDA-Public Use
  Company Number: IT-TAKEDA-2016TUS018162

PATIENT
  Age: 39 Year
  Sex: Male

DRUGS (3)
  1. BRINTELLIX [Suspect]
     Active Substance: VORTIOXETINE HYDROBROMIDE
     Indication: PRODUCT USED FOR UNKNOWN INDICATION
     Dosage: 10 MG, QD
     Route: 048
  2. GABAPENTIN. [Suspect]
     Active Substance: GABAPENTIN
     Indication: PRODUCT USED FOR UNKNOWN INDICATION
     Dosage: 600 MG, Q8HR
     Route: 065
  3. MUTABON FORTE 25MG + 4MG COMPRESSE RIVESTITE CONFILM/AMITRIPTYLINE HY [Suspect]
     Active Substance: AMITRIPTYLINE HYDROCHLORIDE\PERPHENAZINE
     Indication: ANXIETY
     Dosage: UNK
     Route: 048
     Dates: start: 2011, end: 201312

REACTIONS (8)
  - Derealisation [Unknown]
  - Hallucination, auditory [Unknown]
  - Headache [Unknown]
  - Dysgeusia [Unknown]
  - Parosmia [Unknown]
  - Suicidal ideation [Not Recovered/Not Resolved]
  - Paraesthesia [Unknown]
  - General physical health deterioration [Unknown]

NARRATIVE: CASE EVENT DATE: 20110101
